FAERS Safety Report 4515263-1 (Version None)
Quarter: 2004Q4

REPORT INFORMATION
  Report Type: 
  Country: None (occurrence: None)
  Receive Date: 20041126
  Receipt Date: 20041118
  Transmission Date: 20050328
  Serious: Yes (Death, Hospitalization)
  Sender: FDA-Public Use
  Company Number: DE-2004-028654

PATIENT
  Age: 57 Year
  Sex: Male
  Weight: 107 kg

DRUGS (13)
  1. CAMPATH [Suspect]
     Indication: CHRONIC LYMPHOCYTIC LEUKAEMIA
     Dosage: SEE IMAGE
     Route: 058
     Dates: start: 20040630, end: 20040630
  2. CAMPATH [Suspect]
     Indication: CHRONIC LYMPHOCYTIC LEUKAEMIA
     Dosage: SEE IMAGE
     Route: 058
     Dates: start: 20040701, end: 20040701
  3. CAMPATH [Suspect]
     Indication: CHRONIC LYMPHOCYTIC LEUKAEMIA
     Dosage: SEE IMAGE
     Route: 058
     Dates: start: 20040702, end: 20040702
  4. CAMPATH [Suspect]
     Indication: CHRONIC LYMPHOCYTIC LEUKAEMIA
     Dosage: SEE IMAGE
     Route: 058
     Dates: start: 20040706, end: 20040706
  5. RAMIPRIL [Concomitant]
  6. BELOC ZOK (METOPROLOL SUCCINATE) [Concomitant]
  7. ZYLORIC   FAES [Concomitant]
  8. PARACETAMOL [Concomitant]
  9. VALTREX [Concomitant]
  10. AMPHO-MORONAL (AMPHOTERICIN B) [Concomitant]
  11. CLEMASTINE FUMARATE [Concomitant]
  12. ZANTAC [Concomitant]
  13. PREDNISOLONE [Concomitant]

REACTIONS (6)
  - BLOOD ALKALINE PHOSPHATASE INCREASED [None]
  - BLOOD BILIRUBIN INCREASED [None]
  - DEPRESSED LEVEL OF CONSCIOUSNESS [None]
  - GAMMA-GLUTAMYLTRANSFERASE INCREASED [None]
  - PLATELET COUNT DECREASED [None]
  - TUMOUR LYSIS SYNDROME [None]
